FAERS Safety Report 6965865-8 (Version None)
Quarter: 2010Q3

REPORT INFORMATION
  Report Type: 
  Country: None (occurrence: None)
  Receive Date: 20100903
  Receipt Date: 20100825
  Transmission Date: 20110219
  Serious: Yes (Hospitalization, Other)
  Sender: FDA-Public Use
  Company Number: US-WYE-H17194910

PATIENT
  Sex: Male
  Weight: 83.54 kg

DRUGS (14)
  1. PRISTIQ [Suspect]
     Indication: DEPRESSION
     Route: 048
     Dates: start: 20080101
  2. PRISTIQ [Suspect]
     Dosage: DOSE WAS INCREASED TO 100 MG/DAY THEN 200 MG/DAY FOR UNKNOWN REASON
     Route: 048
  3. PRISTIQ [Suspect]
  4. PRISTIQ [Suspect]
     Dosage: HAS BEEN ^SELF MEDICATING^ AND WILL TAKE 7, 8 OR 9 OVER THE COURSE OF THE DAY
  5. WELLBUTRIN [Concomitant]
     Dates: end: 20100801
  6. WELLBUTRIN [Concomitant]
     Dates: start: 20100801
  7. REGULAR INSULIN [Concomitant]
     Indication: INSULIN-REQUIRING TYPE 2 DIABETES MELLITUS
     Dosage: 70/30 UNKNOWN DOSE
  8. ACETYLSALICYLIC ACID [Concomitant]
     Dosage: UNKNOWN
  9. METFORMIN [Concomitant]
     Dosage: UNKNOWN
  10. TRICOR [Concomitant]
     Dosage: UNKNOWN
  11. LIPITOR [Concomitant]
     Dosage: UNKNOWN
  12. TRAZODONE HCL [Suspect]
     Indication: INSOMNIA
     Dosage: UNKNOWN
  13. TRAZODONE HCL [Suspect]
     Dosage: TOOK OVERDOSE 40 TRAZODONE
     Dates: start: 20100601, end: 20100601
  14. KLONOPIN [Concomitant]
     Indication: ANXIETY

REACTIONS (10)
  - DRUG EFFECT DECREASED [None]
  - DRUG INEFFECTIVE [None]
  - DYSURIA [None]
  - GLYCOSYLATED HAEMOGLOBIN INCREASED [None]
  - INTENTIONAL DRUG MISUSE [None]
  - INTENTIONAL OVERDOSE [None]
  - PROSTATOMEGALY [None]
  - SELF-MEDICATION [None]
  - SUICIDE ATTEMPT [None]
  - WEIGHT DECREASED [None]
